FAERS Safety Report 10174244 (Version 1)
Quarter: 2014Q2

REPORT INFORMATION
  Report Type: Spontaneous
  Country: US (occurrence: None)
  Receive Date: 20140514
  Receipt Date: 20140514
  Transmission Date: 20141212
  Serious: Yes (Hospitalization)
  Sender: FDA-Public Use
  Company Number: None

PATIENT
  Age: 64 Year
  Sex: Female

DRUGS (1)
  1. STIVARGA [Suspect]
     Indication: COLON CANCER
     Route: 048
     Dates: start: 20140429, end: 20140501

REACTIONS (1)
  - Urinary tract infection [None]
